FAERS Safety Report 8515815-8 (Version None)
Quarter: 2012Q3

REPORT INFORMATION
  Report Type: 
  Country: None (occurrence: None)
  Receive Date: 20120705
  Receipt Date: 20120622
  Transmission Date: 20120928
  Serious: Yes (Hospitalization, Other)
  Sender: FDA-Public Use
  Company Number: 2012SP001248

PATIENT
  Age: 66 Year
  Sex: Male
  Weight: 64 kg

DRUGS (7)
  1. FAMOTIDINE [Concomitant]
  2. ASPIRIN [Concomitant]
  3. PEG-INTRON [Suspect]
     Indication: HEPATITIS C
     Dosage: 1.5 MCG/KG;QW;SC
     Route: 058
     Dates: start: 20111221, end: 20111221
  4. REBETOL [Suspect]
     Indication: HEPATITIS C
     Dosage: 800 MG;QD;PO
     Route: 048
     Dates: start: 20111221, end: 20111223
  5. PREDNISOLONE [Concomitant]
  6. TELAVIC (TELAPREVIR) (INVESTIGATIONAL DRUG) [Suspect]
     Indication: HEPATITIS C
     Dosage: 2250 MG;QD;PO
     Route: 048
     Dates: start: 20111221, end: 20111223
  7. VERAPAMIL HCL [Concomitant]

REACTIONS (13)
  - MALAISE [None]
  - SHOCK [None]
  - ALTERED STATE OF CONSCIOUSNESS [None]
  - COAGULOPATHY [None]
  - ACIDOSIS [None]
  - POST PROCEDURAL COMPLICATION [None]
  - METABOLIC ACIDOSIS [None]
  - GASTROINTESTINAL NECROSIS [None]
  - ILEAL PERFORATION [None]
  - RENAL IMPAIRMENT [None]
  - HYPOTHERMIA [None]
  - INCISIONAL HERNIA [None]
  - PERITONITIS [None]
